FAERS Safety Report 13304399 (Version 1)
Quarter: 2017Q1

REPORT INFORMATION
  Report Type: Spontaneous
  Country: US (occurrence: US)
  Receive Date: 20170308
  Receipt Date: 20170308
  Transmission Date: 20170428
  Serious: No
  Sender: FDA-Public Use
  Company Number: PHEH2017US006456

PATIENT
  Sex: Male

DRUGS (2)
  1. VOLTAREN [Suspect]
     Active Substance: DICLOFENAC SODIUM
     Indication: ANKYLOSING SPONDYLITIS
     Route: 065
  2. CYTOTEC [Concomitant]
     Active Substance: MISOPROSTOL
     Indication: ANKYLOSING SPONDYLITIS
     Route: 065

REACTIONS (1)
  - Abdominal discomfort [Unknown]
